FAERS Safety Report 9888411 (Version 1)
Quarter: 2014Q1

REPORT INFORMATION
  Report Type: Spontaneous
  Country: US (occurrence: US)
  Receive Date: 20140211
  Receipt Date: 20140211
  Transmission Date: 20141002
  Serious: No
  Sender: FDA-Public Use
  Company Number: US-PFIZER INC-2014037329

PATIENT
  Age: 70 Year
  Sex: Male
  Weight: 89.3 kg

DRUGS (4)
  1. VIAGRA [Suspect]
     Indication: ERECTILE DYSFUNCTION
     Dosage: 100 MG, AS NEEDED
  2. LOSARTAN [Concomitant]
     Dosage: 100 MG, 1X/DAY
  3. DOXAZOSIN [Concomitant]
     Dosage: 8 MG, 1X/DAY
  4. OXYBUTYNIN [Concomitant]
     Dosage: 5 MG, 2X/DAY

REACTIONS (2)
  - Nasopharyngitis [Recovering/Resolving]
  - Laryngitis [Recovering/Resolving]
